FAERS Safety Report 9617664 (Version 2)
Quarter: 2013Q4

REPORT INFORMATION
  Report Type: Spontaneous
  Country: FR (occurrence: FR)
  Receive Date: 20131011
  Receipt Date: 20131011
  Transmission Date: 20140711
  Serious: Yes (Other)
  Sender: FDA-Public Use
  Company Number: FR-ELI_LILLY_AND_COMPANY-FR201309002439

PATIENT
  Age: 72 Year
  Sex: Male
  Weight: 57 kg

DRUGS (9)
  1. EFIENT [Suspect]
     Dosage: 10 MG, QD
     Route: 048
     Dates: start: 201304
  2. EFIENT [Suspect]
     Dosage: 5 MG, QD
     Route: 048
  3. KARDEGIC [Concomitant]
     Dosage: 75 MG, QD
  4. BIOZOLE                            /00780601/ [Concomitant]
     Dosage: 2.5 MG, QD
  5. TRIATEC [Concomitant]
     Dosage: 5 MG, QD
  6. PARIET [Concomitant]
     Dosage: 10 MG, QD
  7. ALPRAZOLAM [Concomitant]
     Dosage: 0.25 MG, UNKNOWN
  8. NATISPRAY [Concomitant]
  9. CRESTOR [Concomitant]
     Dosage: 20 MG, QD

REACTIONS (6)
  - Lip swelling [Recovered/Resolved]
  - Swollen tongue [Recovered/Resolved]
  - Weight decreased [Unknown]
  - Stomatitis [Unknown]
  - Anal pruritus [Unknown]
  - Proctalgia [Unknown]
